FAERS Safety Report 5331804-9 (Version None)
Quarter: 2007Q2

REPORT INFORMATION
  Report Type: 
  Country: None (occurrence: None)
  Receive Date: 20070517
  Receipt Date: 20070509
  Transmission Date: 20071010
  Serious: Yes (Hospitalization)
  Sender: FDA-Public Use
  Company Number: 2007-02304

PATIENT
  Age: 36 Year
  Sex: Male

DRUGS (5)
  1. TESTOSTERONE CYPIONATE [Suspect]
     Indication: BLOOD TESTOSTERONE DECREASED
     Dosage: 1 ML, SINGLE, RIGHT THIGH, INTRAMUSCULAR
     Route: 030
     Dates: start: 20070427
  2. TESTOSTERONE ENANTHATE [Suspect]
     Indication: BLOOD TESTOSTERONE DECREASED
     Dosage: 1 ML, SINGLE, RIGHT THIGH, INTRAMUSCULAR
     Route: 030
     Dates: start: 20070427
  3. BENICAR [Concomitant]
  4. CODEINE SUL TAB [Concomitant]
  5. OXYCODONE HCL [Concomitant]

REACTIONS (2)
  - FASCIITIS [None]
  - INJECTION SITE CELLULITIS [None]
